FAERS Safety Report 17603895 (Version 2)
Quarter: 2020Q3

REPORT INFORMATION
  Report Type: Spontaneous
  Country: AU (occurrence: AU)
  Receive Date: 20200331
  Receipt Date: 20200706
  Transmission Date: 20201102
  Serious: Yes (Other)
  Sender: FDA-Public Use
  Company Number: AU-ROCHE-2572080

PATIENT
  Age: 23 Year
  Sex: Male

DRUGS (1)
  1. ACTEMRA [Suspect]
     Active Substance: TOCILIZUMAB
     Indication: PRODUCT USED FOR UNKNOWN INDICATION
     Route: 065

REACTIONS (3)
  - Retinal vasculitis [Unknown]
  - Necrotising retinitis [Not Recovered/Not Resolved]
  - Varicella zoster virus infection [Unknown]

NARRATIVE: CASE EVENT DATE: 20191030
